FAERS Safety Report 22961098 (Version 4)
Quarter: 2024Q1

REPORT INFORMATION
  Report Type: Report from Study
  Country: US (occurrence: US)
  Receive Date: 20230920
  Receipt Date: 20240216
  Transmission Date: 20240409
  Serious: Yes (Other)
  Sender: FDA-Public Use
  Company Number: US-ABBVIE-5410422

PATIENT
  Sex: Male
  Weight: 93 kg

DRUGS (1)
  1. RINVOQ [Suspect]
     Active Substance: UPADACITINIB
     Indication: Crohn^s disease
     Dosage: FORM STRENGTH: 45 MILLIGRAM
     Route: 048
     Dates: start: 20230905

REACTIONS (5)
  - Ostomy bag placement [Unknown]
  - Product residue present [Not Recovered/Not Resolved]
  - Acne [Not Recovered/Not Resolved]
  - Skin infection [Not Recovered/Not Resolved]
  - Rectal discharge [Recovering/Resolving]

NARRATIVE: CASE EVENT DATE: 20230101
